FAERS Safety Report 7654050-2 (Version None)
Quarter: 2011Q3

REPORT INFORMATION
  Report Type: 
  Country: None (occurrence: None)
  Receive Date: 20110802
  Receipt Date: 20110802
  Transmission Date: 20111222
  Serious: Yes (Death)
  Sender: FDA-Public Use
  Company Number: None

PATIENT
  Sex: Female
  Weight: 55.8 kg

DRUGS (5)
  1. RITUXIMAB 100 MG/ML [Suspect]
     Indication: AUTOIMMUNE THROMBOCYTOPENIA
     Dosage: 600 MG ONCE IV IN 190 ML NORMAL SALINE
     Route: 042
     Dates: start: 20110705
  2. ACETAMINOPHEN [Concomitant]
  3. METHYLPREDNISOLONE [Concomitant]
  4. ONDANCETRON [Concomitant]
  5. FAMOTIDINE [Concomitant]

REACTIONS (5)
  - VOMITING [None]
  - HEADACHE [None]
  - ASTHENIA [None]
  - BASAL GANGLIA HAEMORRHAGE [None]
  - BRAIN DEATH [None]
